FAERS Safety Report 21519848 (Version 3)
Quarter: 2025Q4

REPORT INFORMATION
  Report Type: Report from Study
  Country: CA (occurrence: CA)
  Receive Date: 20221028
  Receipt Date: 20251114
  Transmission Date: 20260117
  Serious: Yes (Other)
  Sender: ROCHE
  Company Number: CA-ROCHE-2882895

PATIENT
  Age: 47 Year
  Sex: Female

DRUGS (10)
  1. ACTEMRA [Suspect]
     Active Substance: TOCILIZUMAB
     Indication: Rheumatoid arthritis
     Route: 042
     Dates: start: 20200919, end: 20210929
  2. ACTEMRA [Suspect]
     Active Substance: TOCILIZUMAB
     Route: 042
  3. ACTEMRA ACTPEN [Suspect]
     Active Substance: TOCILIZUMAB
     Indication: Rheumatoid arthritis
     Dosage: 0.9ML ACTPEN
     Route: 058
     Dates: start: 20210604, end: 2021
  4. ACTEMRA ACTPEN [Suspect]
     Active Substance: TOCILIZUMAB
     Route: 058
     Dates: start: 2021, end: 20250905
  5. SULFASALAZINE [Suspect]
     Active Substance: SULFASALAZINE
     Indication: Product used for unknown indication
     Route: 065
  6. GLICLAZIDE [Concomitant]
     Active Substance: GLICLAZIDE
  7. PANTOPRAZOLE [Concomitant]
     Active Substance: PANTOPRAZOLE
  8. PREDNISONE [Concomitant]
     Active Substance: PREDNISONE
     Dosage: 15 MG 3/7?5 MG 2/7
  9. METFORMIN [Concomitant]
     Active Substance: METFORMIN HYDROCHLORIDE
  10. VENTOLIN [Concomitant]
     Active Substance: ALBUTEROL SULFATE

REACTIONS (8)
  - Cystitis [Recovered/Resolved]
  - Drug hypersensitivity [Unknown]
  - Bronchitis [Unknown]
  - Interstitial lung disease [Unknown]
  - Pulmonary oedema [Unknown]
  - Arthritis [Recovered/Resolved]
  - Cardiac disorder [Unknown]
  - Pain [Unknown]

NARRATIVE: CASE EVENT DATE: 20210101
